FAERS Safety Report 8338188-2 (Version None)
Quarter: 2012Q2

REPORT INFORMATION
  Report Type: 
  Country: None (occurrence: None)
  Receive Date: 20120504
  Receipt Date: 20120425
  Transmission Date: 20120825
  Serious: Yes (Hospitalization, Other)
  Sender: FDA-Public Use
  Company Number: US-ASTRAZENECA-2012SE02121

PATIENT
  Age: 58 Year
  Sex: Male

DRUGS (7)
  1. ALBUTEROL SULFATE [Concomitant]
     Indication: ASTHMA
     Dosage: 1.25MG/3ML OID
  2. NOVOLIN 70/30 [Concomitant]
     Indication: DIABETES MELLITUS
     Dosage: 70-30% TID
  3. DEXAMETHASONE [Concomitant]
     Indication: INFLAMMATION
     Route: 048
  4. AMOXICILLIN [Concomitant]
  5. ADVAID DISKUS [Concomitant]
     Indication: ASTHMA
     Dosage: 250-50 MCG/DOSE
     Route: 055
  6. VANDETANIB [Suspect]
     Indication: THYROID CANCER
     Route: 048
     Dates: start: 20111220, end: 20120420
  7. MORPHINE SULFATE [Concomitant]
     Indication: PAIN
     Route: 048

REACTIONS (15)
  - RASH [None]
  - YELLOW SKIN [None]
  - DECREASED APPETITE [None]
  - ORAL PAIN [None]
  - HOT FLUSH [None]
  - HEART RATE INCREASED [None]
  - LYMPHADENOPATHY [None]
  - EPISTAXIS [None]
  - CONTUSION [None]
  - DYSPNOEA [None]
  - ACNE [None]
  - BLOOD PRESSURE INCREASED [None]
  - NEOPLASM [None]
  - CLOSTRIDIUM DIFFICILE COLITIS [None]
  - DEHYDRATION [None]
